FAERS Safety Report 8354261-7 (Version None)
Quarter: 2012Q2

REPORT INFORMATION
  Report Type: 
  Country: None (occurrence: None)
  Receive Date: 20120511
  Receipt Date: 20120508
  Transmission Date: 20120825
  Serious: Yes (Other)
  Sender: FDA-Public Use
  Company Number: US-PFIZER INC-2012081059

PATIENT
  Sex: Female
  Weight: 118 kg

DRUGS (13)
  1. TEGRETOL [Suspect]
     Indication: NEUROPATHY PERIPHERAL
     Dosage: 200 MG, 2X/DAY
     Dates: start: 20111209, end: 20120413
  2. ZANAFLEX [Concomitant]
     Indication: MUSCLE RELAXANT THERAPY
     Dosage: 8 MG, 3X/DAY
     Dates: start: 20090818
  3. ZANAFLEX [Concomitant]
     Indication: MUSCLE SPASMS
  4. POTASSIUM [Concomitant]
     Dosage: UNK
  5. LYRICA [Suspect]
     Indication: NEUROPATHY PERIPHERAL
     Dosage: 150 MG, 3X/DAY
     Route: 048
     Dates: start: 20111223, end: 20120413
  6. AMARYL [Concomitant]
     Dosage: UNK
  7. LYRICA [Suspect]
     Indication: FIBROMYALGIA
     Dosage: 150 MG, 3X/DAY
     Route: 048
     Dates: start: 20081201, end: 20111216
  8. LASIX [Concomitant]
     Dosage: UNK
  9. TRAMADOL [Concomitant]
     Indication: BACK PAIN
     Dosage: UNK
     Dates: start: 20080922
  10. AMBIEN [Concomitant]
  11. NEURONTIN [Concomitant]
  12. OXYCODONE [Concomitant]
     Dosage: UNK
  13. CLINORIL [Concomitant]

REACTIONS (11)
  - HYPERTENSION [None]
  - SKIN DISCOLOURATION [None]
  - PRURITUS [None]
  - RASH ERYTHEMATOUS [None]
  - SKIN LESION [None]
  - VISION BLURRED [None]
  - ARTHRITIS [None]
  - MUSCULOSKELETAL DISCOMFORT [None]
  - BODY HEIGHT DECREASED [None]
  - WEIGHT INCREASED [None]
  - RASH [None]
